FAERS Safety Report 17865760 (Version 1)
Quarter: 2020Q2

REPORT INFORMATION
  Report Type: Spontaneous
  Country: US (occurrence: US)
  Receive Date: 20200605
  Receipt Date: 20200605
  Transmission Date: 20200714
  Serious: Yes (Hospitalization)
  Sender: FDA-Public Use
  Company Number: None

PATIENT
  Age: 72 Year
  Sex: Female

DRUGS (19)
  1. L-THYROXI NE [Concomitant]
  2. AMLODIPINE [Concomitant]
     Active Substance: AMLODIPINE BESYLATE
  3. METOPROLOL. [Concomitant]
     Active Substance: METOPROLOL
  4. VITD3 [Concomitant]
  5. FLONASE [Concomitant]
     Active Substance: FLUTICASONE PROPIONATE
  6. NOVOLOG [Concomitant]
     Active Substance: INSULIN ASPART
  7. LEVATIRACETAM [Concomitant]
     Active Substance: LEVETIRACETAM
  8. WELL BUTRI N [Concomitant]
  9. FENOFI BRATE [Concomitant]
  10. ROSUVASTATI N [Concomitant]
  11. COUMADIN [Concomitant]
     Active Substance: WARFARIN SODIUM
  12. ALLOPURINOL. [Concomitant]
     Active Substance: ALLOPURINOL
  13. DOXAZOSIN [Concomitant]
     Active Substance: DOXAZOSIN MESYLATE
  14. CAL CITRIOL [Concomitant]
  15. HYDRALAZINE [Concomitant]
     Active Substance: HYDRALAZINE HYDROCHLORIDE
  16. IANTUS [Concomitant]
  17. REPATHA [Suspect]
     Active Substance: EVOLOCUMAB
     Indication: HYPERLIPIDAEMIA
     Route: 058
  18. FISH OIL [Concomitant]
     Active Substance: FISH OIL
  19. ASPIRIN. [Concomitant]
     Active Substance: ASPIRIN

REACTIONS (1)
  - Coronary artery bypass [None]

NARRATIVE: CASE EVENT DATE: 20200525
